FAERS Safety Report 6780998-7 (Version None)
Quarter: 2010Q2

REPORT INFORMATION
  Report Type: 
  Country: None (occurrence: None)
  Receive Date: 20100617
  Receipt Date: 20100617
  Transmission Date: 20101027
  Serious: Yes (Life-Threatening)
  Sender: FDA-Public Use
  Company Number: None

PATIENT
  Age: 55 Year
  Sex: Female

DRUGS (13)
  1. IRON SUCROSE [Suspect]
     Indication: IRON DEFICIENCY ANAEMIA
     Dosage: 400 X1 IV
     Route: 042
     Dates: start: 20100303, end: 20100303
  2. PREDNISONE [Concomitant]
  3. LISINOPRIL [Concomitant]
  4. SODIUM BICARBONATE [Concomitant]
  5. NIFEDIPINE [Concomitant]
  6. PRAVASTATIN [Concomitant]
  7. MYCOPHENOLATE MOFETIL [Concomitant]
  8. TACROLIMUS [Concomitant]
  9. FERROUS SULFATE TAB [Concomitant]
  10. ACYCLOVIR [Concomitant]
  11. AMOXICILLIN [Concomitant]
  12. CALCIUM CARBONATE [Concomitant]
  13. MULTI-VITAMINS [Suspect]

REACTIONS (4)
  - ACCIDENT [None]
  - HYPOPHAGIA [None]
  - LOSS OF CONSCIOUSNESS [None]
  - PRESYNCOPE [None]
